FAERS Safety Report 14474175 (Version 1)
Quarter: 2018Q1

REPORT INFORMATION
  Report Type: Spontaneous
  Country: US (occurrence: US)
  Receive Date: 20180131
  Receipt Date: 20180131
  Transmission Date: 20180509
  Serious: Yes (Hospitalization)
  Sender: FDA-Public Use
  Company Number: None

PATIENT
  Age: 84 Year
  Sex: Male
  Weight: 87.54 kg

DRUGS (2)
  1. DILTIAZEM. [Suspect]
     Active Substance: DILTIAZEM
     Indication: ATRIAL FIBRILLATION
     Route: 048
     Dates: start: 20171114, end: 20171124
  2. FUROSEMIDE. [Suspect]
     Active Substance: FUROSEMIDE
     Indication: CARDIAC FAILURE CONGESTIVE
     Route: 048
     Dates: start: 20171114, end: 20171124

REACTIONS (6)
  - Therapy cessation [None]
  - Dyspnoea [None]
  - Urticaria [None]
  - Oedema peripheral [None]
  - Pruritus [None]
  - Rash [None]

NARRATIVE: CASE EVENT DATE: 20171121
